FAERS Safety Report 6779521-2 (Version None)
Quarter: 2010Q2

REPORT INFORMATION
  Report Type: 
  Country: None (occurrence: None)
  Receive Date: 20100618
  Receipt Date: 20100609
  Transmission Date: 20101027
  Serious: Yes (Hospitalization)
  Sender: FDA-Public Use
  Company Number: FR-SANOFI-AVENTIS-2010SA033276

PATIENT
  Age: 62 Year
  Sex: Female

DRUGS (10)
  1. FLUDEX [Suspect]
     Indication: DRUG USE FOR UNKNOWN INDICATION
     Route: 065
  2. APROVEL [Suspect]
     Indication: DRUG USE FOR UNKNOWN INDICATION
     Route: 048
     Dates: start: 20040801, end: 20100520
  3. DIGOXIN [Suspect]
     Indication: DRUG USE FOR UNKNOWN INDICATION
  4. PREVISCAN [Suspect]
     Indication: DRUG USE FOR UNKNOWN INDICATION
  5. IPERTEN [Suspect]
     Indication: DRUG USE FOR UNKNOWN INDICATION
  6. ALENDRONIC ACID [Suspect]
     Indication: DRUG USE FOR UNKNOWN INDICATION
  7. OROCAL [Suspect]
     Indication: DRUG USE FOR UNKNOWN INDICATION
  8. METFORMIN [Suspect]
     Indication: DRUG USE FOR UNKNOWN INDICATION
  9. INSULIN DETEMIR [Concomitant]
     Indication: DRUG USE FOR UNKNOWN INDICATION
  10. NOVOMIX [Concomitant]
     Indication: DRUG USE FOR UNKNOWN INDICATION

REACTIONS (3)
  - BLOOD CREATINE PHOSPHOKINASE INCREASED [None]
  - MYALGIA [None]
  - RHABDOMYOLYSIS [None]
